FAERS Safety Report 12878709 (Version 3)
Quarter: 2016Q4

REPORT INFORMATION
  Report Type: Report from Study
  Country: None (occurrence: NL)
  Receive Date: 20161024
  Receipt Date: 20161114
  Transmission Date: 20170207
  Serious: Yes (Other)
  Sender: FDA-Public Use
  Company Number: NL-ABBVIE-16P-114-1761474-00

PATIENT
  Sex: Male
  Weight: 74 kg

DRUGS (5)
  1. ALGELDRATE W/MAGNESIUM HYDROXIDE [Concomitant]
     Indication: PRODUCT USED FOR UNKNOWN INDICATION
     Dosage: 40 / 20 MG / ML
     Route: 048
  2. FLUTICASONE W/SALMETEROL [Concomitant]
     Active Substance: FLUTICASONE PROPIONATE\SALMETEROL XINAFOATE
     Indication: PRODUCT USED FOR UNKNOWN INDICATION
     Dosage: 50 / 250 UG / DO
     Route: 055
  3. LUCRIN DEPOT [Suspect]
     Active Substance: LEUPROLIDE ACETATE
     Indication: PROSTATE CANCER
     Route: 030
     Dates: start: 20151112, end: 20161018
  4. LUCRIN DEPOT [Suspect]
     Active Substance: LEUPROLIDE ACETATE
     Route: 030
     Dates: start: 20161020
  5. CYPROTERONE [Concomitant]
     Active Substance: CYPROTERONE
     Indication: PRODUCT USED FOR UNKNOWN INDICATION
     Route: 048

REACTIONS (7)
  - Dry mouth [Recovered/Resolved]
  - Nasopharyngitis [Recovered/Resolved]
  - Diaphragmatic hernia [Recovered/Resolved]
  - Head discomfort [Recovered/Resolved]
  - Abdominal distension [Recovered/Resolved]
  - Injection site reaction [Not Recovered/Not Resolved]
  - Muscle fatigue [Recovered/Resolved]
